FAERS Safety Report 11704630 (Version 1)
Quarter: 2015Q4

REPORT INFORMATION
  Report Type: Spontaneous
  Country: US (occurrence: None)
  Receive Date: 20151105
  Receipt Date: 20151105
  Transmission Date: 20160304
  Serious: No
  Sender: FDA-Public Use
  Company Number: None

PATIENT

DRUGS (1)
  1. TRILUMA [Suspect]
     Active Substance: HYDROQUINONE

REACTIONS (2)
  - Skin discolouration [None]
  - Paradoxical drug reaction [None]
